FAERS Safety Report 8802256 (Version 1)
Quarter: 2012Q4

REPORT INFORMATION
  Report Type: Report from Study
  Country: HU (occurrence: HU)
  Receive Date: 20120921
  Receipt Date: 20120921
  Transmission Date: 20130627
  Serious: Yes (Hospitalization, Other)
  Sender: FDA-Public Use
  Company Number: HU-ROCHE-1126378

PATIENT
  Age: 78 Year
  Sex: Female

DRUGS (3)
  1. XELODA [Suspect]
     Indication: BREAST CANCER
     Dosage: Dose: 2 X 4
     Route: 048
     Dates: start: 20100111
  2. XELODA [Suspect]
     Dosage: Dose: 2 X 4
     Route: 048
  3. XELODA [Suspect]
     Route: 048
     Dates: start: 201008

REACTIONS (2)
  - Fall [Unknown]
  - Disease progression [Unknown]
